FAERS Safety Report 7947900-3 (Version None)
Quarter: 2011Q4

REPORT INFORMATION
  Report Type: 
  Country: None (occurrence: None)
  Receive Date: 20111121
  Receipt Date: 20111111
  Transmission Date: 20120403
  Serious: Yes (Other)
  Sender: FDA-Public Use
  Company Number: 2011SP053098

PATIENT
  Sex: Female

DRUGS (1)
  1. IMPLANON [Suspect]
     Indication: CONTRACEPTION
     Dates: start: 20110901

REACTIONS (3)
  - FOETAL EXPOSURE DURING PREGNANCY [None]
  - ABORTION [None]
  - PREGNANCY WITH IMPLANT CONTRACEPTIVE [None]
